FAERS Safety Report 8963170 (Version 1)
Quarter: 2012Q4

REPORT INFORMATION
  Report Type: Report from Study
  Country: CA (occurrence: CA)
  Receive Date: 20121213
  Receipt Date: 20121213
  Transmission Date: 20130627
  Serious: Yes (Other)
  Sender: FDA-Public Use
  Company Number: PHHY2012CA113619

PATIENT
  Sex: Female

DRUGS (3)
  1. ACLASTA/ZOLEDRONATE [Suspect]
     Indication: OSTEOPOROSIS
     Dosage: UNK UKN, UNK
     Route: 042
     Dates: start: 20091027
  2. VIT D [Concomitant]
     Dosage: 400 UKN, BID
     Dates: start: 200907
  3. CALCIUM [Concomitant]
     Dosage: 500 UKN, BID

REACTIONS (1)
  - Dementia [Unknown]
